FAERS Safety Report 9414450 (Version 1)
Quarter: 2013Q3

REPORT INFORMATION
  Report Type: Spontaneous
  Country: AU (occurrence: None)
  Receive Date: 20130717
  Receipt Date: 20130717
  Transmission Date: 20140515
  Serious: Yes (Hospitalization)
  Sender: FDA-Public Use
  Company Number: 2013000161

PATIENT
  Age: 38 Year
  Sex: Male
  Weight: 154 kg

DRUGS (4)
  1. ACEON [Suspect]
     Indication: PRODUCT USED FOR UNKNOWN INDICATION
  2. BENZATROPINE MESILATE [Suspect]
     Indication: PRODUCT USED FOR UNKNOWN INDICATION
  3. BENZATHINE BENZYLPENICILLIN [Suspect]
     Indication: PRODUCT USED FOR UNKNOWN INDICATION
  4. CLOZARIL (CLOZAPINE) [Suspect]
     Indication: PRODUCT USED FOR UNKNOWN INDICATION
     Route: 048

REACTIONS (4)
  - Bundle branch block right [None]
  - Electrocardiogram QT prolonged [None]
  - Sinus tachycardia [None]
  - Weight increased [None]
